FAERS Safety Report 8689510 (Version 3)
Quarter: 2013Q2

REPORT INFORMATION
  Report Type: Spontaneous
  Country: US (occurrence: US)
  Receive Date: 20120727
  Receipt Date: 20130416
  Transmission Date: 20140414
  Serious: No
  Sender: FDA-Public Use
  Company Number: US-ASTRAZENECA-2011SE78566

PATIENT
  Age: 47 Year
  Sex: Male

DRUGS (1)
  1. SEROQUEL [Suspect]
     Route: 048

REACTIONS (6)
  - Insomnia [Unknown]
  - Diabetes mellitus [Unknown]
  - Stress [Unknown]
  - Asthenia [Unknown]
  - Vomiting [Unknown]
  - Drug dose omission [Unknown]
